FAERS Safety Report 6659919-3 (Version None)
Quarter: 2010Q1

REPORT INFORMATION
  Report Type: 
  Country: None (occurrence: None)
  Receive Date: 20100326
  Receipt Date: 20100315
  Transmission Date: 20100710
  Serious: Yes (Hospitalization)
  Sender: FDA-Public Use
  Company Number: UTC-000950

PATIENT
  Age: 55 Year
  Sex: Male
  Weight: 82 kg

DRUGS (5)
  1. REMODULIN [Suspect]
     Indication: PULMONARY ARTERIAL HYPERTENSION
     Dosage: 17.28 UG/KG (0.012 UG/KG, 1 IN 1 MIN), SUBCUTANEOUS
     Route: 058
     Dates: start: 20091001
  2. FUROSEMIDE [Concomitant]
  3. REVATIO [Concomitant]
  4. INSPRA [Concomitant]
  5. WARFARIN SODIUM [Concomitant]

REACTIONS (3)
  - HYPOKALAEMIA [None]
  - RIGHT VENTRICULAR DYSFUNCTION [None]
  - SYNCOPE [None]
